FAERS Safety Report 18733469 (Version 3)
Quarter: 2021Q1

REPORT INFORMATION
  Report Type: Report from Study
  Country: None (occurrence: US)
  Receive Date: 20210112
  Receipt Date: 20210203
  Transmission Date: 20210419
  Serious: Yes (Other)
  Sender: FDA-Public Use
  Company Number: US-ABBVIE-20K-163-3680022-00

PATIENT
  Sex: Female
  Weight: 59.02 kg

DRUGS (6)
  1. HUMIRA [Suspect]
     Active Substance: ADALIMUMAB
     Indication: PSORIATIC ARTHROPATHY
     Route: 058
     Dates: start: 2019, end: 202011
  2. LEVOTHYROXINE. [Concomitant]
     Active Substance: LEVOTHYROXINE
     Indication: HYPOTHYROIDISM
  3. METHOTREXATE. [Concomitant]
     Active Substance: METHOTREXATE
     Indication: RHEUMATOID ARTHRITIS
  4. HUMIRA [Suspect]
     Active Substance: ADALIMUMAB
     Route: 058
     Dates: start: 202012, end: 202101
  5. TELMISARTAN. [Concomitant]
     Active Substance: TELMISARTAN
     Indication: HYPERTENSION
  6. HUMIRA [Suspect]
     Active Substance: ADALIMUMAB
     Route: 058
     Dates: start: 202101

REACTIONS (11)
  - Tooth fracture [Recovered/Resolved]
  - Arthritis [Recovering/Resolving]
  - Back pain [Recovering/Resolving]
  - Inflammation [Recovering/Resolving]
  - Device breakage [Recovered/Resolved]
  - Herpes zoster [Recovered/Resolved]
  - Neck pain [Recovering/Resolving]
  - Tooth fracture [Recovered/Resolved]
  - Device breakage [Unknown]
  - Immunodeficiency [Not Recovered/Not Resolved]
  - Fear of disease [Unknown]

NARRATIVE: CASE EVENT DATE: 2019
